FAERS Safety Report 13976883 (Version 2)
Quarter: 2017Q4

REPORT INFORMATION
  Report Type: Report from Study
  Country: US (occurrence: US)
  Receive Date: 20170915
  Receipt Date: 20171003
  Transmission Date: 20180321
  Serious: Yes (Life-Threatening, Hospitalization)
  Sender: FDA-Public Use
  Company Number: PHHO2017US012388

PATIENT
  Age: 16 Year
  Sex: Male

DRUGS (35)
  1. METHOTREXATE. [Suspect]
     Active Substance: METHOTREXATE
     Dosage: 15 MG, ONCE/SINGLE
     Route: 037
     Dates: start: 20170711, end: 20170711
  2. METHOTREXATE. [Suspect]
     Active Substance: METHOTREXATE
     Dosage: 15 MG, SINGLE
     Route: 037
     Dates: start: 20170627, end: 20170627
  3. METHOTREXATE. [Suspect]
     Active Substance: METHOTREXATE
     Dosage: 15 MG, SINGLE
     Route: 037
     Dates: start: 20170705, end: 20170705
  4. CYTARABINE. [Suspect]
     Active Substance: CYTARABINE
     Dosage: 130 MG, QD
     Route: 058
     Dates: start: 20170626, end: 20170629
  5. CYTARABINE. [Suspect]
     Active Substance: CYTARABINE
     Dosage: 130 MG, QD
     Route: 058
     Dates: start: 20170731, end: 20170803
  6. MERCAPTOPURINE. [Suspect]
     Active Substance: MERCAPTOPURINE
     Indication: B-CELL TYPE ACUTE LEUKAEMIA
     Dosage: 725 MG, QW
     Route: 048
     Dates: start: 20170619, end: 20170702
  7. VINCRISTINE [Suspect]
     Active Substance: VINCRISTINE
     Indication: B-CELL TYPE ACUTE LEUKAEMIA
     Dosage: SINGLE
     Route: 042
     Dates: start: 20170703, end: 20170703
  8. DAUNOCIN [Suspect]
     Active Substance: DAUNORUBICIN HYDROCHLORIDE
     Indication: B PRECURSOR TYPE ACUTE LEUKAEMIA
     Dosage: UNK
     Route: 065
  9. METHOTREXATE. [Suspect]
     Active Substance: METHOTREXATE
     Indication: B-CELL TYPE ACUTE LEUKAEMIA
     Dosage: 15 MG, ONCE/SINGLE
     Route: 037
     Dates: start: 20170620, end: 20170620
  10. CYCLOPHOSPHAMIDE. [Suspect]
     Active Substance: CYCLOPHOSPHAMIDE
     Dosage: 1740 MG, ONCE/SINGLE
     Route: 042
     Dates: start: 20170619, end: 20170619
  11. CYTARABINE. [Suspect]
     Active Substance: CYTARABINE
     Indication: B-CELL TYPE ACUTE LEUKAEMIA
     Dosage: 130 MG, QD
     Route: 058
     Dates: start: 20170619, end: 20170622
  12. CYTARABINE. [Suspect]
     Active Substance: CYTARABINE
     Dosage: 130 MG, QD
     Route: 058
     Dates: start: 20170724, end: 20170727
  13. LEUCOVORIN. [Suspect]
     Active Substance: LEUCOVORIN
     Dosage: 24 MG, UNK
     Route: 042
     Dates: start: 20170831
  14. METHOTREXATE. [Suspect]
     Active Substance: METHOTREXATE
     Dosage: 15 MG, ONCE/SINGLE
     Route: 037
     Dates: start: 20170627, end: 20170627
  15. PREDNISONE. [Suspect]
     Active Substance: PREDNISONE
     Indication: B-CELL TYPE ACUTE LEUKAEMIA
     Dosage: UNK
     Route: 048
  16. VINCRISTINE [Suspect]
     Active Substance: VINCRISTINE
     Dosage: SINGLE
     Route: 042
     Dates: start: 20170710, end: 20170710
  17. VINCRISTINE [Suspect]
     Active Substance: VINCRISTINE
     Dosage: SINGLE
     Route: 042
     Dates: start: 20170807, end: 20170807
  18. VINCRISTINE [Suspect]
     Active Substance: VINCRISTINE
     Dosage: 2 MG, ONCE/SINGLE
     Route: 042
     Dates: start: 20170829
  19. LEUCOVORIN. [Suspect]
     Active Substance: LEUCOVORIN
     Indication: B PRECURSOR TYPE ACUTE LEUKAEMIA
     Dosage: NO TREATMENT
     Route: 065
  20. METHOTREXATE. [Suspect]
     Active Substance: METHOTREXATE
     Dosage: 15 MG, SINGLE
     Route: 037
     Dates: start: 20170711, end: 20170711
  21. METHOTREXATE. [Suspect]
     Active Substance: METHOTREXATE
     Dosage: 8150 MG, ONCE
     Route: 042
     Dates: start: 20170829
  22. VINCRISTINE [Suspect]
     Active Substance: VINCRISTINE
     Dosage: SINGLE
     Route: 042
     Dates: start: 20170814, end: 20170814
  23. INC424A [Suspect]
     Active Substance: RUXOLITINIB
     Dosage: 80 MG, BID
     Route: 048
     Dates: start: 20170829, end: 20170906
  24. METHOTREXATE. [Suspect]
     Active Substance: METHOTREXATE
     Dosage: 15 MG, ONCE/SINGLE
     Route: 037
     Dates: start: 20170705, end: 20170705
  25. CYCLOPHOSPHAMIDE. [Suspect]
     Active Substance: CYCLOPHOSPHAMIDE
     Indication: B PRECURSOR TYPE ACUTE LEUKAEMIA
     Dosage: 1740 MG, ONCE/SINGLE
     Route: 042
     Dates: start: 20170619, end: 20170619
  26. MERCAPTOPURINE. [Suspect]
     Active Substance: MERCAPTOPURINE
     Dosage: 700 MG, QW
     Route: 048
     Dates: start: 20170724, end: 20170806
  27. PEGASPARGASE [Suspect]
     Active Substance: PEGASPARGASE
     Indication: B-CELL TYPE ACUTE LEUKAEMIA
     Dosage: 4350 IU, ONCE/SINGLE
     Route: 042
     Dates: start: 20170703, end: 20170703
  28. PEGASPARGASE [Suspect]
     Active Substance: PEGASPARGASE
     Dosage: 4200 IU, ONCE/SINGLE
     Route: 042
     Dates: start: 20170814, end: 20170814
  29. INC424A [Suspect]
     Active Substance: RUXOLITINIB
     Indication: B-CELL TYPE ACUTE LEUKAEMIA
     Dosage: 85 MG, BID
     Route: 048
     Dates: start: 20170619, end: 20170704
  30. METHOTREXATE. [Suspect]
     Active Substance: METHOTREXATE
     Dosage: 8150 MG, ONCE/SINGLE
     Route: 042
     Dates: start: 20170829
  31. METHOTREXATE. [Suspect]
     Active Substance: METHOTREXATE
     Dosage: 15 MG, ONCE/SINGLE
     Route: 037
     Dates: start: 20170620, end: 20170620
  32. CYCLOPHOSPHAMIDE. [Suspect]
     Active Substance: CYCLOPHOSPHAMIDE
     Dosage: 1700 MG, ONCE/SINGLE
     Route: 042
     Dates: start: 20170624, end: 20170624
  33. INC424A [Suspect]
     Active Substance: RUXOLITINIB
     Dosage: 85 MG, BID
     Route: 048
     Dates: start: 20170724, end: 20170806
  34. CYCLOPHOSPHAMIDE. [Suspect]
     Active Substance: CYCLOPHOSPHAMIDE
     Dosage: 1700 MG, ONCE/SINGLE
     Route: 042
     Dates: start: 20170624, end: 20170624
  35. MERCAPTOPURINE. [Suspect]
     Active Substance: MERCAPTOPURINE
     Dosage: UNK
     Route: 048
     Dates: start: 20170829, end: 20170906

REACTIONS (4)
  - Decreased appetite [Recovered/Resolved]
  - Neutropenia [Recovered/Resolved]
  - Vascular access complication [Recovered/Resolved]
  - Pyrexia [Recovered/Resolved]

NARRATIVE: CASE EVENT DATE: 20170823
